FAERS Safety Report 6873814-6 (Version None)
Quarter: 2010Q3

REPORT INFORMATION
  Report Type: 
  Country: None (occurrence: None)
  Receive Date: 20100723
  Receipt Date: 20090318
  Transmission Date: 20110219
  Serious: No
  Sender: FDA-Public Use
  Company Number: US-PFIZER INC-2009186657

PATIENT
  Sex: Female
  Weight: 108 kg

DRUGS (1)
  1. CHANTIX [Suspect]
     Indication: SMOKING CESSATION THERAPY
     Dosage: UNK
     Dates: end: 20080428

REACTIONS (3)
  - ABNORMAL DREAMS [None]
  - OEDEMA PERIPHERAL [None]
  - WEIGHT INCREASED [None]
